FAERS Safety Report 16612125 (Version 1)
Quarter: 2019Q3

REPORT INFORMATION
  Report Type: Spontaneous
  Country: FR (occurrence: FR)
  Receive Date: 20190722
  Receipt Date: 20190722
  Transmission Date: 20191004
  Serious: Yes (Other)
  Sender: FDA-Public Use
  Company Number: PHHY2019FR166559

PATIENT
  Age: 71 Year
  Sex: Female
  Weight: 76 kg

DRUGS (2)
  1. MYDRIATICUM [Suspect]
     Active Substance: TROPICAMIDE
     Indication: MYDRIASIS
     Dosage: 1 DF, ONCE/SINGLE, TOTAL
     Route: 047
     Dates: start: 20190625
  2. FLUORESCEINE 10% FAURE [Suspect]
     Active Substance: FLUORESCEIN SODIUM
     Indication: ANGIOGRAM RETINA
     Dosage: 5 ML, ONCE/SINGLE
     Route: 047
     Dates: start: 20190625

REACTIONS (1)
  - Purpura [Recovering/Resolving]

NARRATIVE: CASE EVENT DATE: 20190625
